FAERS Safety Report 25561589 (Version 1)
Quarter: 2025Q3

REPORT INFORMATION
  Report Type: Spontaneous
  Country: EU (occurrence: EU)
  Receive Date: 20250716
  Receipt Date: 20250716
  Transmission Date: 20251021
  Serious: Yes (Other)
  Sender: CELLTRION
  Company Number: EU-CELLTRION INC.-2025PT022716

PATIENT

DRUGS (2)
  1. RITUXIMAB [Suspect]
     Active Substance: RITUXIMAB
     Indication: Myasthenia gravis
  2. RITUXIMAB [Suspect]
     Active Substance: RITUXIMAB
     Indication: Thymoma

REACTIONS (2)
  - Iatrogenic Kaposi sarcoma [Unknown]
  - Intentional product use issue [Unknown]
